FAERS Safety Report 12368583 (Version 2)
Quarter: 2016Q2

REPORT INFORMATION
  Report Type: Spontaneous
  Country: CA (occurrence: CA)
  Receive Date: 20160513
  Receipt Date: 20160628
  Transmission Date: 20160815
  Serious: Yes (Other)
  Sender: FDA-Public Use
  Company Number: CA-PURDUE PHARMA-CAN-2016-0006686

PATIENT
  Age: 6 Year
  Sex: Male

DRUGS (8)
  1. LAX-A-DAY [Concomitant]
     Indication: PRODUCT USED FOR UNKNOWN INDICATION
     Dosage: UNK
     Route: 065
  2. MULTIVITAMIN                       /00831701/ [Concomitant]
     Active Substance: VITAMINS
     Indication: PRODUCT USED FOR UNKNOWN INDICATION
     Dosage: UNK
     Route: 065
  3. BIPHENTIN CAPSULE [Suspect]
     Active Substance: METHYLPHENIDATE
     Dosage: 20 MG, DAILY
     Route: 048
     Dates: start: 201505, end: 20150626
  4. MELATONIN [Concomitant]
     Active Substance: MELATONIN
     Indication: PRODUCT USED FOR UNKNOWN INDICATION
     Dosage: UNK
     Route: 065
  5. CLARITIN [Concomitant]
     Active Substance: LORATADINE
     Indication: PRODUCT USED FOR UNKNOWN INDICATION
     Dosage: UNK
     Route: 065
     Dates: start: 20151112, end: 20151125
  6. BIPHENTIN CAPSULE [Suspect]
     Active Substance: METHYLPHENIDATE
     Dosage: 25 MG, DAILY
     Route: 048
     Dates: start: 20150623, end: 20151118
  7. BIPHENTIN CAPSULE [Suspect]
     Active Substance: METHYLPHENIDATE
     Indication: ATTENTION DEFICIT/HYPERACTIVITY DISORDER
     Dosage: 15 MG, DAILY
     Route: 048
     Dates: start: 20151118, end: 20160113
  8. BIPHENTIN CAPSULE [Suspect]
     Active Substance: METHYLPHENIDATE
     Dosage: UNK UNK, DAILY
     Route: 048
     Dates: start: 20131231

REACTIONS (2)
  - Hepatitis [Unknown]
  - Cell death [Unknown]

NARRATIVE: CASE EVENT DATE: 2015
